FAERS Safety Report 10111494 (Version 2)
Quarter: 2014Q2

REPORT INFORMATION
  Report Type: Report from Study
  Country: FR (occurrence: FR)
  Receive Date: 20140425
  Receipt Date: 20140507
  Transmission Date: 20141212
  Serious: Yes (Hospitalization, Other)
  Sender: FDA-Public Use
  Company Number: FR-GILEAD-2014-0100664

PATIENT
  Age: 76 Year
  Sex: Female
  Weight: 85 kg

DRUGS (4)
  1. AMBRISENTAN [Suspect]
     Indication: PULMONARY ARTERIAL HYPERTENSION
     Dosage: 10 MG, QD
     Route: 048
     Dates: start: 20120802, end: 20140411
  2. AMBRISENTAN [Suspect]
     Dosage: 10 UNK, UNK
     Route: 048
     Dates: start: 20140413
  3. TADALAFIL [Suspect]
     Indication: PULMONARY ARTERIAL HYPERTENSION
     Dosage: 40 MG, QD
     Dates: start: 20120802, end: 20140411
  4. TADALAFIL [Suspect]
     Dosage: 40 UNK, UNK
     Route: 048
     Dates: start: 20140413

REACTIONS (2)
  - Lung disorder [Recovered/Resolved]
  - Appendicitis [Recovered/Resolved]
